FAERS Safety Report 8802879 (Version 1)
Quarter: 2012Q4

REPORT INFORMATION
  Report Type: 
  Country: FR (occurrence: FR)
  Receive Date: 20120924
  Receipt Date: 20120924
  Transmission Date: 20130627
  Serious: Yes (Hospitalization)
  Sender: FDA-Public Use
  Company Number: FR-SANOFI-AVENTIS-2012SA066680

PATIENT
  Age: 76 Year
  Sex: Male

DRUGS (10)
  1. LOVENOX [Suspect]
     Indication: DRUG USE FOR UNKNOWN INDICATION
     Route: 058
     Dates: start: 20120802, end: 20120823
  2. TEGRETOL [Suspect]
     Indication: DRUG USE FOR UNKNOWN INDICATION
     Route: 048
     Dates: start: 20120723, end: 20120823
  3. ZONEGRAN [Suspect]
     Indication: DRUG USE FOR UNKNOWN INDICATION
     Route: 048
     Dates: start: 20120813
  4. ANTIEPILEPTICS [Concomitant]
     Route: 048
     Dates: start: 201205
  5. KEPPRA [Concomitant]
     Route: 048
     Dates: start: 20120723
  6. DOMPERIDONE [Concomitant]
     Route: 048
  7. INEXIUM [Concomitant]
  8. SPECIAFOLDINE [Concomitant]
  9. URBANYL [Concomitant]
  10. PREVISCAN [Concomitant]
     Route: 048

REACTIONS (1)
  - Neutropenia [Recovered/Resolved]
